FAERS Safety Report 8949811 (Version 1)
Quarter: 2012Q4

REPORT INFORMATION
  Report Type: 
  Country: GB (occurrence: GB)
  Receive Date: 20121206
  Receipt Date: 20121206
  Transmission Date: 20130627
  Serious: Yes (Hospitalization)
  Sender: FDA-Public Use
  Company Number: GB-ROCHE-1162015

PATIENT
  Age: 21 Year
  Sex: Female
  Weight: 53 kg

DRUGS (4)
  1. ROACCUTANE [Suspect]
     Indication: ACNE
     Route: 048
     Dates: start: 20120703, end: 20120903
  2. DIAZEPAM [Concomitant]
  3. LORAZEPAM [Concomitant]
  4. OLANZAPINE [Concomitant]

REACTIONS (4)
  - Anxiety [Recovered/Resolved with Sequelae]
  - Personality disorder [Recovered/Resolved with Sequelae]
  - Psychotic disorder [Recovered/Resolved with Sequelae]
  - Stress [Recovered/Resolved with Sequelae]
